FAERS Safety Report 17774342 (Version 1)
Quarter: 2020Q2

REPORT INFORMATION
  Report Type: Spontaneous
  Country: AE (occurrence: AE)
  Receive Date: 20200513
  Receipt Date: 20200513
  Transmission Date: 20200714
  Serious: Yes (Hospitalization)
  Sender: FDA-Public Use
  Company Number: AE-ASTRAZENECA-2020SE61602

PATIENT
  Age: 54 Year
  Sex: Female

DRUGS (3)
  1. FASENRA [Suspect]
     Active Substance: BENRALIZUMAB
     Indication: ASTHMA
     Route: 058
  2. FASENRA [Suspect]
     Active Substance: BENRALIZUMAB
     Indication: ASTHMA
     Route: 058
     Dates: start: 20200413
  3. PANADOL [Concomitant]
     Active Substance: ACETAMINOPHEN
     Indication: PYREXIA
     Dosage: 1000.0MG UNKNOWN
     Route: 048
     Dates: start: 20200503

REACTIONS (3)
  - Pyrexia [Unknown]
  - Secretion discharge [Unknown]
  - Cough [Unknown]

NARRATIVE: CASE EVENT DATE: 20200503
